FAERS Safety Report 25914168 (Version 1)
Quarter: 2025Q4

REPORT INFORMATION
  Report Type: Report from Study
  Country: PR (occurrence: PR)
  Receive Date: 20251013
  Receipt Date: 20251013
  Transmission Date: 20260118
  Serious: No
  Sender: MALLINCKRODT
  Company Number: PR-MALLINCKRODT-MNK202506166

PATIENT
  Age: 59 Year
  Sex: Male
  Weight: 100 kg

DRUGS (12)
  1. CORTICOTROPIN [Suspect]
     Active Substance: CORTICOTROPIN
     Indication: Psoriatic arthropathy
     Dosage: 80 UNITS
     Route: 058
     Dates: start: 20250314
  2. VERAPAMIL HCL [Concomitant]
     Active Substance: VERAPAMIL HYDROCHLORIDE
     Dosage: UNKNOWN
     Route: 048
  3. DORZOLAMIDE HYDROCHLORIDE [Concomitant]
     Active Substance: DORZOLAMIDE HYDROCHLORIDE
     Dosage: UNKNOWN
  4. INTEGRA PLUS [Concomitant]
     Active Substance: ASCORBIC ACID\BIOTIN\CALCIUM PANTOTHENATE\FERROUS ASPARTO GLYCINATE\FERROUS FUMARATE\FOLIC ACID\NIAC
     Dosage: UNKNOWN
     Route: 048
  5. FAMOTIDINE [Concomitant]
     Active Substance: FAMOTIDINE
     Dosage: UNKNOWN
     Route: 048
  6. TACROLIMUS [Concomitant]
     Active Substance: TACROLIMUS
     Dosage: UNKNOWN
     Route: 048
  7. ATORVASTATIN CALCIUM [Concomitant]
     Active Substance: ATORVASTATIN CALCIUM
     Dosage: UNKNOWN
     Route: 048
  8. FARXIGA [Concomitant]
     Active Substance: DAPAGLIFLOZIN PROPANEDIOL
     Dosage: UNKNOWN
     Route: 048
  9. IRBESARTAN [Concomitant]
     Active Substance: IRBESARTAN
     Dosage: UNKNOWN
     Route: 048
  10. ALLOPURINOL [Concomitant]
     Active Substance: ALLOPURINOL
     Dosage: UNKNOWN
     Route: 048
  11. FOLIC ACID [Concomitant]
     Active Substance: FOLIC ACID
     Dosage: UNKNOWN
     Route: 048
  12. METHOTREXATE [Concomitant]
     Active Substance: METHOTREXATE
     Dosage: UNKNOWN
     Route: 048

REACTIONS (1)
  - Pain [Not Recovered/Not Resolved]

NARRATIVE: CASE EVENT DATE: 20251001
